FAERS Safety Report 6257303-8 (Version None)
Quarter: 2009Q2

REPORT INFORMATION
  Report Type: 
  Country: None (occurrence: None)
  Receive Date: 20090630
  Receipt Date: 20090630
  Transmission Date: 20091009
  Serious: Yes (Other)
  Sender: FDA-Public Use
  Company Number: None

PATIENT
  Age: 38 Year
  Sex: Female
  Weight: 58.9676 kg

DRUGS (1)
  1. YAZ [Suspect]
     Indication: CONTRACEPTION
     Dosage: REGULAR YAZ DOSE ONCE DAILY PO APPROX. SIX WEEKS OR  SO
     Route: 048
     Dates: start: 20070601, end: 20070715

REACTIONS (1)
  - DIARRHOEA [None]
